FAERS Safety Report 6814382-4 (Version None)
Quarter: 2010Q3

REPORT INFORMATION
  Report Type: 
  Country: None (occurrence: None)
  Receive Date: 20100702
  Receipt Date: 20100618
  Transmission Date: 20110219
  Serious: Yes (Hospitalization)
  Sender: FDA-Public Use
  Company Number: GB-ELI_LILLY_AND_COMPANY-GB201006005463

PATIENT
  Age: 65 Year
  Sex: Female

DRUGS (6)
  1. GEMCITABINE HYDROCHLORIDE [Suspect]
     Indication: NON-SMALL CELL LUNG CANCER
     Dosage: 1800 MG, DAILY (1/D)
     Route: 065
     Dates: start: 20100107
  2. CARBOPLATIN [Suspect]
     Indication: NON-SMALL CELL LUNG CANCER
     Dosage: 600 MG, DAILY (1/D)
     Route: 065
     Dates: start: 20100107
  3. SIMVASTATIN [Concomitant]
     Indication: HYPERCHOLESTEROLAEMIA
     Dosage: UNK, UNKNOWN
     Route: 065
  4. ACETAMINOPHEN [Concomitant]
     Indication: ARTHRALGIA
     Dosage: UNK, UNKNOWN
     Route: 065
  5. CODEINE SULFATE [Concomitant]
     Indication: ARTHRALGIA
     Dosage: UNK, UNKNOWN
     Route: 065
  6. MORPHINE [Concomitant]
     Indication: ARTHRALGIA
     Dosage: UNK, UNKNOWN
     Route: 065

REACTIONS (1)
  - NEUTROPENIC SEPSIS [None]
